FAERS Safety Report 15329899 (Version 2)
Quarter: 2018Q3

REPORT INFORMATION
  Report Type: Spontaneous
  Country: US (occurrence: US)
  Receive Date: 20180829
  Receipt Date: 20180914
  Transmission Date: 20181010
  Serious: No
  Sender: FDA-Public Use
  Company Number: US-PFIZER INC-2018346075

PATIENT
  Age: 73 Year
  Sex: Male
  Weight: 108.86 kg

DRUGS (2)
  1. CHILDRENS ADVIL [Suspect]
     Active Substance: IBUPROFEN
     Indication: OROPHARYNGEAL PAIN
     Dosage: 400 MG LIQUID SUSPENSION TWICE A DAY THROUGH THE FEEDING TUBE
     Dates: start: 20180815
  2. OXYCODONE [Suspect]
     Active Substance: OXYCODONE
     Indication: PAIN
     Dosage: UNK
     Dates: start: 20180701, end: 20180814

REACTIONS (2)
  - Somnolence [Unknown]
  - Sedation [Unknown]

NARRATIVE: CASE EVENT DATE: 201808
